FAERS Safety Report 15494774 (Version 1)
Quarter: 2018Q4

REPORT INFORMATION
  Report Type: Spontaneous
  Country: FR (occurrence: FR)
  Receive Date: 20181012
  Receipt Date: 20181012
  Transmission Date: 20190205
  Serious: Yes (Hospitalization)
  Sender: FDA-Public Use
  Company Number: FR-SA-2018SA278073

PATIENT
  Age: 81 Year
  Sex: Female

DRUGS (3)
  1. PLAVIX [Suspect]
     Active Substance: CLOPIDOGREL BISULFATE
     Indication: DEEP VEIN THROMBOSIS
     Dosage: 75 MG, QD
     Route: 048
     Dates: start: 20180104, end: 20180125
  2. KARDEGIC [Suspect]
     Active Substance: ASPIRIN DL-LYSINE
     Indication: DEEP VEIN THROMBOSIS
     Dosage: 75 MG, QH
     Route: 048
     Dates: start: 20180104, end: 20180125
  3. HEPARINE SODIQUE WINTHROP [Suspect]
     Active Substance: HEPARIN SODIUM
     Indication: DEEP VEIN THROMBOSIS
     Dosage: 1 DF, QD
     Route: 058
     Dates: start: 20180104, end: 20180213

REACTIONS (2)
  - Haemorrhagic anaemia [Recovered/Resolved]
  - Rectal haemorrhage [Recovered/Resolved]

NARRATIVE: CASE EVENT DATE: 20180113
